FAERS Safety Report 9614363 (Version 2)
Quarter: 2013Q4

REPORT INFORMATION
  Report Type: Report from Study
  Country: US (occurrence: US)
  Receive Date: 20131011
  Receipt Date: 20131029
  Transmission Date: 20140711
  Serious: Yes (Other)
  Sender: FDA-Public Use
  Company Number: US-JNJFOC-20131002080

PATIENT
  Age: 70 Year
  Sex: Female
  Weight: 73.48 kg

DRUGS (8)
  1. REMICADE [Suspect]
     Indication: ARTHRITIS REACTIVE
     Route: 042
  2. REMICADE [Suspect]
     Indication: REITER^S SYNDROME
     Route: 042
  3. SIMVASTATIN [Concomitant]
     Indication: BLOOD CHOLESTEROL
     Route: 048
     Dates: start: 2012
  4. AMLODIPINE [Concomitant]
     Indication: BLOOD PRESSURE
     Route: 048
     Dates: start: 2013
  5. MULTIVITAMINS [Concomitant]
     Route: 065
  6. CALCIUM [Concomitant]
     Route: 065
  7. ASPIRIN [Concomitant]
     Dosage: IN THE EVENING
     Route: 048
  8. GLUCOSAMINE [Concomitant]
     Route: 065

REACTIONS (4)
  - Lipoma [Recovered/Resolved]
  - Tumour pain [Recovered/Resolved]
  - Wound infection [Recovered/Resolved]
  - Off label use [Unknown]
